FAERS Safety Report 13172590 (Version 3)
Quarter: 2017Q1

REPORT INFORMATION
  Report Type: Report from Study
  Country: US (occurrence: US)
  Receive Date: 20170131
  Receipt Date: 20170228
  Transmission Date: 20170428
  Serious: Yes (Hospitalization)
  Sender: FDA-Public Use
  Company Number: US-ACTELION-A-NJ2017-148570

PATIENT
  Age: 39 Year
  Sex: Female
  Weight: 111.11 kg

DRUGS (5)
  1. VENTAVIS [Suspect]
     Active Substance: ILOPROST
     Indication: PULMONARY ARTERIAL HYPERTENSION
     Dosage: 5 MCG, 6-9 INHALATIONS/DAY
     Route: 055
  2. ADEMPAS [Concomitant]
     Active Substance: RIOCIGUAT
  3. OMEPRAZOLE. [Concomitant]
     Active Substance: OMEPRAZOLE
  4. VENTAVIS [Suspect]
     Active Substance: ILOPROST
     Dosage: 5 MCG, 3-6 INHALATIONS/DAY
     Route: 055
     Dates: start: 20121015
  5. OPSUMIT [Suspect]
     Active Substance: MACITENTAN
     Indication: PULMONARY ARTERIAL HYPERTENSION
     Dosage: 10 MG, QD
     Route: 048
     Dates: start: 20160407

REACTIONS (5)
  - Chest pain [Not Recovered/Not Resolved]
  - Peripheral swelling [Not Recovered/Not Resolved]
  - Gastrointestinal haemorrhage [Unknown]
  - Pneumonia [Unknown]
  - Oxygen saturation decreased [Not Recovered/Not Resolved]
